FAERS Safety Report 6724302-9 (Version None)
Quarter: 2010Q2

REPORT INFORMATION
  Report Type: 
  Country: None (occurrence: None)
  Receive Date: 20100513
  Receipt Date: 20100504
  Transmission Date: 20101027
  Serious: Yes (Other)
  Sender: FDA-Public Use
  Company Number: US-WYE-H03172308

PATIENT
  Sex: Female

DRUGS (2)
  1. PREMARIN [Suspect]
  2. MEDROXYPROGESTERONE ACETATE [Suspect]

REACTIONS (3)
  - BREAST CANCER METASTATIC [None]
  - CEREBROVASCULAR ACCIDENT [None]
  - MYOCARDIAL INFARCTION [None]
